FAERS Safety Report 9264231 (Version 2)
Quarter: 2013Q3

REPORT INFORMATION
  Report Type: Spontaneous
  Country: CA (occurrence: CA)
  Receive Date: 20130430
  Receipt Date: 20130821
  Transmission Date: 20140515
  Serious: Yes (Other)
  Sender: FDA-Public Use
  Company Number: CHPA2013CA007126

PATIENT
  Age: 72 Year
  Sex: Female

DRUGS (2)
  1. BUCKLEY^S MIXTURE (USA) [Suspect]
     Indication: ASTHMA
     Dosage: UNK, PRN
     Route: 048
     Dates: start: 1963, end: 20130421
  2. BUCKLEY^S COMPLETE [Suspect]
     Indication: ASTHMA
     Dosage: 1 TSP, UNK
     Route: 048
     Dates: start: 2013, end: 2013

REACTIONS (9)
  - Atrial fibrillation [Not Recovered/Not Resolved]
  - Cerebrovascular accident [Recovered/Resolved]
  - Asthma [Not Recovered/Not Resolved]
  - Disease recurrence [Not Recovered/Not Resolved]
  - Cough [Recovered/Resolved]
  - Therapeutic response unexpected [Unknown]
  - Wrong technique in drug usage process [Unknown]
  - Drug ineffective for unapproved indication [Unknown]
  - Underdose [Unknown]
